FAERS Safety Report 7640820-3 (Version None)
Quarter: 2011Q3

REPORT INFORMATION
  Report Type: 
  Country: None (occurrence: None)
  Receive Date: 20110728
  Receipt Date: 20110603
  Transmission Date: 20111222
  Serious: No
  Sender: FDA-Public Use
  Company Number: US-MUTUAL PHARMACEUTICAL COMPANY, INC.-CLCY20110069

PATIENT
  Sex: Male
  Weight: 108.96 kg

DRUGS (5)
  1. VICODIN 7.5/500 MG [Concomitant]
     Indication: BACK PAIN
     Route: 048
  2. NAPROXEN [Concomitant]
     Indication: PAIN
     Route: 048
  3. ALLOPURINOL [Concomitant]
     Indication: GOUT
     Route: 048
  4. COLCRYS [Suspect]
     Indication: PROPHYLAXIS
     Route: 048
     Dates: start: 20110518, end: 20110530
  5. COLCRYS [Suspect]
     Route: 048
     Dates: start: 20110602

REACTIONS (1)
  - DRUG INEFFECTIVE [None]
